FAERS Safety Report 7777473-X (Version None)
Quarter: 2011Q3

REPORT INFORMATION
  Report Type: 
  Country: None (occurrence: None)
  Receive Date: 20110919
  Receipt Date: 20110617
  Transmission Date: 20111222
  Serious: Yes (Hospitalization)
  Sender: FDA-Public Use
  Company Number: RLI2011-DISU525

PATIENT
  Age: 38 Year
  Sex: Male
  Weight: 99 kg

DRUGS (1)
  1. ANTABUSE [Suspect]
     Indication: INVESTIGATION
     Dosage: 500 MG, 1 PO
     Route: 048
     Dates: start: 20110521, end: 20110521

REACTIONS (2)
  - ULNA FRACTURE [None]
  - FALL [None]
